FAERS Safety Report 10327974 (Version 1)
Quarter: 2014Q3

REPORT INFORMATION
  Report Type: Report from Study
  Country: GB (occurrence: GB)
  Receive Date: 20140721
  Receipt Date: 20140721
  Transmission Date: 20150326
  Serious: Yes (Death, Other)
  Sender: FDA-Public Use
  Company Number: GB-ROCHE-1435889

PATIENT

DRUGS (7)
  1. PREDNISOLONE. [Suspect]
     Active Substance: PREDNISOLONE
     Indication: DIFFUSE VASCULITIS
     Dosage: MEDIAN DOSE 30 MG
     Route: 048
  2. RITUXIMAB [Suspect]
     Active Substance: RITUXIMAB
     Indication: DIFFUSE VASCULITIS
     Route: 065
  3. MYCOPHENOLATE MOFETIL. [Suspect]
     Active Substance: MYCOPHENOLATE MOFETIL
     Indication: DIFFUSE VASCULITIS
     Route: 065
  4. CYCLOPHOSPHAMIDE. [Suspect]
     Active Substance: CYCLOPHOSPHAMIDE
     Indication: DIFFUSE VASCULITIS
     Route: 065
  5. METHYLPREDNISOLONE [Suspect]
     Active Substance: METHYLPREDNISOLONE
     Indication: DIFFUSE VASCULITIS
     Route: 065
  6. METHOTREXATE [Suspect]
     Active Substance: METHOTREXATE
     Indication: DIFFUSE VASCULITIS
     Route: 065
  7. AZATHIOPRINE. [Suspect]
     Active Substance: AZATHIOPRINE
     Indication: DIFFUSE VASCULITIS
     Route: 065

REACTIONS (9)
  - Myocardial infarction [Unknown]
  - Herpes zoster [Unknown]
  - Diabetes mellitus [Unknown]
  - Huerthle cell carcinoma [Unknown]
  - Pancreatitis [Unknown]
  - Death [Fatal]
  - Squamous cell carcinoma [Unknown]
  - Urinary tract infection [Unknown]
  - Cataract [Unknown]
